FAERS Safety Report 13750919 (Version 3)
Quarter: 2018Q2

REPORT INFORMATION
  Report Type: Report from Study
  Country: BR (occurrence: BR)
  Receive Date: 20170713
  Receipt Date: 20180418
  Transmission Date: 20180711
  Serious: Yes (Hospitalization)
  Sender: FDA-Public Use
  Company Number: PHHY2017BR101754

PATIENT
  Sex: Female
  Weight: 60 kg

DRUGS (2)
  1. EXELON PATCH [Suspect]
     Active Substance: RIVASTIGMINE
     Indication: DEMENTIA ALZHEIMER^S TYPE
     Dosage: 9.5 MG, QD PATCH 10 (CM2)
     Route: 062
  2. EXELON PATCH [Suspect]
     Active Substance: RIVASTIGMINE
     Indication: ABNORMAL BEHAVIOUR

REACTIONS (6)
  - Agitation [Unknown]
  - Weight decreased [Unknown]
  - Drug ineffective [Unknown]
  - Diabetes mellitus [Unknown]
  - Aggression [Unknown]
  - Dementia Alzheimer^s type [Unknown]
